FAERS Safety Report 15205640 (Version 1)
Quarter: 2018Q3

REPORT INFORMATION
  Report Type: Spontaneous
  Country: US (occurrence: US)
  Receive Date: 20180628
  Receipt Date: 20180628
  Transmission Date: 20181010
  Serious: Yes (Death, Hospitalization)
  Sender: FDA-Public Use
  Company Number: None

PATIENT
  Age: 72 Year
  Sex: Male

DRUGS (4)
  1. TRAZODONE [Concomitant]
     Active Substance: TRAZODONE HYDROCHLORIDE
  2. NUPLAZID [Suspect]
     Active Substance: PIMAVANSERIN TARTRATE
     Indication: PARKINSON^S DISEASE PSYCHOSIS
  3. SINEMET [Concomitant]
     Active Substance: CARBIDOPA\LEVODOPA
  4. CLOZAPINE. [Concomitant]
     Active Substance: CLOZAPINE

REACTIONS (5)
  - Hallucination [None]
  - Delusion [None]
  - Sudden death [None]
  - Condition aggravated [None]
  - Paranoia [None]

NARRATIVE: CASE EVENT DATE: 20180623
